FAERS Safety Report 11061834 (Version 1)
Quarter: 2015Q2

REPORT INFORMATION
  Report Type: Spontaneous
  Country: US (occurrence: US)
  Receive Date: 20150424
  Receipt Date: 20150424
  Transmission Date: 20150821
  Serious: No
  Sender: FDA-Public Use
  Company Number: US-BIOGENIDEC-2015BI052133

PATIENT
  Age: 37 Year
  Sex: Female

DRUGS (1)
  1. TECFIDERA [Suspect]
     Active Substance: DIMETHYL FUMARATE
     Indication: MULTIPLE SCLEROSIS

REACTIONS (6)
  - Anxiety [Unknown]
  - Depression [Unknown]
  - Tremor [Unknown]
  - Heart rate increased [Unknown]
  - Chest discomfort [Unknown]
  - Crying [Unknown]

NARRATIVE: CASE EVENT DATE: 20150411
